FAERS Safety Report 22076563 (Version 1)
Quarter: 2023Q1

REPORT INFORMATION
  Report Type: Other
  Country: ZA (occurrence: ZA)
  Receive Date: 20230309
  Receipt Date: 20230309
  Transmission Date: 20230417
  Serious: Yes (Other)
  Sender: FDA-Public Use
  Company Number: ZA-002147023-NVSC2023ZA045886

PATIENT
  Age: 55 Year
  Sex: Female

DRUGS (2)
  1. LUCENTIS [Suspect]
     Active Substance: RANIBIZUMAB
     Indication: Retinal vein occlusion
     Dosage: 1 DOSAGE FORM, QMO (10 MG IN 0.23 ML
     Route: 047
     Dates: start: 20221117
  2. LUCENTIS [Suspect]
     Active Substance: RANIBIZUMAB
     Route: 065
     Dates: start: 20230222

REACTIONS (1)
  - Cataract [Unknown]
